FAERS Safety Report 15851180 (Version 2)
Quarter: 2019Q3

REPORT INFORMATION
  Report Type: Spontaneous
  Country: MY (occurrence: MY)
  Receive Date: 20190122
  Receipt Date: 20190711
  Transmission Date: 20191004
  Serious: Yes (Hospitalization, Other)
  Sender: FDA-Public Use
  Company Number: MY-SUN PHARMACEUTICAL INDUSTRIES LTD-2019R1-196653

PATIENT
  Age: 15 Year
  Sex: Male

DRUGS (1)
  1. DOXORUBICIN [Suspect]
     Active Substance: DOXORUBICIN
     Indication: OSTEOSARCOMA
     Dosage: 450 MILLIGRAM/SQ. METER
     Route: 065
     Dates: start: 201602

REACTIONS (5)
  - Pleural effusion [Recovered/Resolved]
  - Cardiomyopathy acute [Recovered/Resolved]
  - Treatment failure [Unknown]
  - Ascites [Recovered/Resolved]
  - Ejection fraction decreased [Recovering/Resolving]
